FAERS Safety Report 5637739-6 (Version None)
Quarter: 2008Q1

REPORT INFORMATION
  Report Type: 
  Country: None (occurrence: None)
  Receive Date: 20080220
  Receipt Date: 20080207
  Transmission Date: 20080703
  Serious: Yes (Hospitalization)
  Sender: FDA-Public Use
  Company Number: FABR-1000080

PATIENT
  Age: 65 Year
  Sex: Female
  Weight: 54 kg

DRUGS (4)
  1. FABRAZYME [Suspect]
     Indication: FABRY'S DISEASE
     Dosage: 1 MG/KG, Q2W, INTRAVENOUS
     Route: 042
     Dates: start: 20070901
  2. BENADRYL [Concomitant]
  3. ACETAMINOPHEN [Concomitant]
  4. CARDIAC MEDICATIONS (NOS) [Concomitant]

REACTIONS (5)
  - BACK PAIN [None]
  - HYPERCALCAEMIA [None]
  - METABOLIC ACIDOSIS [None]
  - NEPHROLITHIASIS [None]
  - TROPONIN INCREASED [None]
